FAERS Safety Report 22535794 (Version 3)
Quarter: 2023Q4

REPORT INFORMATION
  Report Type: Spontaneous
  Country: US (occurrence: US)
  Receive Date: 20230608
  Receipt Date: 20231212
  Transmission Date: 20240110
  Serious: No
  Sender: FDA-Public Use
  Company Number: US-SA-SAC20230607001497

PATIENT
  Age: 64 Year
  Sex: Female

DRUGS (1)
  1. KEVZARA [Suspect]
     Active Substance: SARILUMAB
     Indication: Rheumatoid arthritis
     Dosage: 200 MG, QOW
     Route: 058
     Dates: start: 202303

REACTIONS (3)
  - Stomatitis [Unknown]
  - Blood blister [Unknown]
  - Injection site rash [Unknown]

NARRATIVE: CASE EVENT DATE: 20230101
